FAERS Safety Report 24646418 (Version 1)
Quarter: 2024Q4

REPORT INFORMATION
  Report Type: Spontaneous
  Country: FR (occurrence: FR)
  Receive Date: 20241121
  Receipt Date: 20241121
  Transmission Date: 20250115
  Serious: Yes (Life-Threatening, Other)
  Sender: AUROBINDO
  Company Number: FR-AFSSAPS-PA2024001734

PATIENT
  Age: 14 Year
  Sex: Male
  Weight: 59 kg

DRUGS (2)
  1. BETAMETHASONE [Suspect]
     Active Substance: BETAMETHASONE
     Indication: Sickle cell anaemia with crisis
     Dosage: 6 MILLIGRAM, EVERY MORNING (6MG EVERY MORNING FOR 5 DAYS)
     Route: 048
     Dates: start: 20240926, end: 20240930
  2. MORPHINE [Suspect]
     Active Substance: MORPHINE
     Indication: Sickle cell anaemia with crisis
     Dosage: 40 MICROGRAM/KILOGRAM, EVERY HOUR (40?G/KG/H)
     Route: 042
     Dates: start: 20240930, end: 20241002

REACTIONS (1)
  - Acute chest syndrome [Recovered/Resolved]

NARRATIVE: CASE EVENT DATE: 20241001
